FAERS Safety Report 7290301-4 (Version None)
Quarter: 2011Q1

REPORT INFORMATION
  Report Type: 
  Country: None (occurrence: None)
  Receive Date: 20110208
  Receipt Date: 20110208
  Transmission Date: 20110831
  Serious: Yes (Death)
  Sender: FDA-Public Use
  Company Number: None

PATIENT
  Age: 25 Year
  Sex: Female
  Weight: 64.4108 kg

DRUGS (1)
  1. CIPRO [Suspect]
     Indication: KIDNEY INFECTION
     Dosage: (SEPT 28 - APPROX)

REACTIONS (4)
  - NAUSEA [None]
  - HALLUCINATION [None]
  - NIGHTMARE [None]
  - INSOMNIA [None]
